FAERS Safety Report 8423174-4 (Version None)
Quarter: 2012Q2

REPORT INFORMATION
  Report Type: 
  Country: None (occurrence: None)
  Receive Date: 20120608
  Receipt Date: 20120604
  Transmission Date: 20120825
  Serious: Yes (Other)
  Sender: FDA-Public Use
  Company Number: US-PFIZER INC-2012132729

PATIENT
  Sex: Female
  Weight: 47 kg

DRUGS (11)
  1. CALCIUM [Concomitant]
     Dosage: 1200 MG, 2X/DAY
  2. LYRICA [Suspect]
     Indication: PAIN
     Dosage: 75 MG, 2X/DAY
     Dates: start: 20120401
  3. DILTIAZEM [Suspect]
     Dosage: 60 MG, AS NEEDED
     Route: 048
  4. CLONAZEPAM [Concomitant]
     Dosage: 0.5 MG, 1X/DAY
  5. LYRICA [Suspect]
     Indication: NERVE INJURY
  6. DILTIAZEM [Suspect]
     Indication: HYPERTENSION
     Dosage: 60 MG, 2X/DAY
     Route: 048
  7. FENTANYL [Concomitant]
     Indication: BACK PAIN
     Dosage: 12 UG, EVERY 72 HOURS
  8. COENZYME Q10 [Concomitant]
     Dosage: 200 MG, ALTERNATE DAY
  9. KETOPROFEN [Concomitant]
     Indication: ARTHRITIS
     Dosage: UNK, AS NEEDED
  10. CELEXA [Concomitant]
     Dosage: 10 MG, 1X/DAY
  11. VITAMIN B COMPLEX CAP [Concomitant]

REACTIONS (4)
  - PAIN IN EXTREMITY [None]
  - DRY MOUTH [None]
  - HYPOTENSION [None]
  - HYPOAESTHESIA [None]
